FAERS Safety Report 4815995-1 (Version None)
Quarter: 2005Q4

REPORT INFORMATION
  Report Type: 
  Country: None (occurrence: None)
  Receive Date: 20051026
  Receipt Date: 20051014
  Transmission Date: 20060501
  Serious: Yes (Hospitalization, Other)
  Sender: FDA-Public Use
  Company Number: 012009

PATIENT
  Age: 53 Year
  Sex: Male

DRUGS (9)
  1. PRIALT(ZICONOTIDE INTRATHECAL INFUSION) SOLUTION [Suspect]
     Indication: PAIN
     Dosage: SEE IMAGE
     Route: 039
     Dates: start: 20050701, end: 20051004
  2. PRIALT(ZICONOTIDE INTRATHECAL INFUSION) SOLUTION [Suspect]
     Indication: PAIN
     Dosage: SEE IMAGE
     Route: 039
     Dates: start: 20051004
  3. DILAUDID [Concomitant]
  4. CLONIDINE [Concomitant]
  5. NEURONTIN [Concomitant]
  6. CELEBREX [Concomitant]
  7. TRAZODONE HCL [Concomitant]
  8. CELEXA [Concomitant]
  9. ZYRTEC [Concomitant]

REACTIONS (10)
  - ABASIA [None]
  - APHASIA [None]
  - ARTHRALGIA [None]
  - ARTHRITIS INFECTIVE [None]
  - CONFUSIONAL STATE [None]
  - DISORIENTATION [None]
  - LOSS OF CONSCIOUSNESS [None]
  - MENTAL IMPAIRMENT [None]
  - SEPSIS [None]
  - URINARY TRACT INFECTION [None]
